FAERS Safety Report 18814382 (Version 1)
Quarter: 2021Q1

REPORT INFORMATION
  Report Type: Spontaneous
  Country: NL (occurrence: NL)
  Receive Date: 20210201
  Receipt Date: 20210201
  Transmission Date: 20210419
  Serious: Yes (Hospitalization)
  Sender: FDA-Public Use
  Company Number: NL-TEVA-2021-NL-1873756

PATIENT
  Sex: Female
  Weight: 78 kg

DRUGS (5)
  1. SIMVASTATINE TABLET FO 20MG / BRAND NAME NOT SPECIFIED [Concomitant]
     Active Substance: SIMVASTATIN
     Dosage: 20 MG , THERAPY START DATE AND END DATE : ASKED BUT UNKNOWN
  2. AMLODIPINE [Concomitant]
     Active Substance: AMLODIPINE BESYLATE
     Dosage: 10 MG , THERAPY START DATE AND END DATE : ASKED BUT UNKNOWN
  3. LISINOPRIL TABLET  5MG / BRAND NAME NOT SPECIFIED [Suspect]
     Active Substance: LISINOPRIL
     Indication: HYPERTENSION
     Dosage: 5 MILLIGRAM DAILY;
     Dates: start: 20201209, end: 20210101
  4. COLECALCIFEROL CAPSULE  25.000IE / BRAND NAME NOT SPECIFIED [Concomitant]
     Dosage: 25000 UNITS , THERAPY START DATE AND END DATE : ASKED BUT UNKNOWN
  5. CARBASALAATCALCIUM POEDER 100MG / ASCAL CARDIO SACHET 100MG [Concomitant]
     Dosage: 100 MG , THERAPY START DATE AND END DATE : ASKED BUT UNKNOWN

REACTIONS (1)
  - Dyspnoea [Recovering/Resolving]
